FAERS Safety Report 13821784 (Version 1)
Quarter: 2017Q3

REPORT INFORMATION
  Report Type: Spontaneous
  Country: CN (occurrence: CN)
  Receive Date: 20170801
  Receipt Date: 20170801
  Transmission Date: 20171127
  Serious: Yes (Other)
  Sender: FDA-Public Use
  Company Number: CN-MERCK KGAA-2024022

PATIENT
  Sex: Female

DRUGS (5)
  1. NOVOTHYROX [Suspect]
     Active Substance: LEVOTHYROXINE SODIUM
     Indication: POST PROCEDURAL HYPOTHYROIDISM
     Route: 048
  2. NOVOTHYROX [Suspect]
     Active Substance: LEVOTHYROXINE SODIUM
  3. NOVOTHYROX [Suspect]
     Active Substance: LEVOTHYROXINE SODIUM
  4. NOVOTHYROX [Suspect]
     Active Substance: LEVOTHYROXINE SODIUM
  5. NOVOTHYROX [Suspect]
     Active Substance: LEVOTHYROXINE SODIUM

REACTIONS (2)
  - Hyperthyroidism [Unknown]
  - Hypothyroidism [Unknown]
